FAERS Safety Report 23498889 (Version 1)
Quarter: 2024Q1

REPORT INFORMATION
  Report Type: Report from Study
  Country: US (occurrence: US)
  Receive Date: 20240208
  Receipt Date: 20240208
  Transmission Date: 20240410
  Serious: Yes (Other)
  Sender: FDA-Public Use
  Company Number: US-ABBVIE-5624529

PATIENT
  Sex: Female

DRUGS (1)
  1. LUMIGAN [Suspect]
     Active Substance: BIMATOPROST
     Indication: Product used for unknown indication
     Dosage: FORM STRENGTH: 0.3MG/ML SOLUTION; FREQUENCY: 1 DROP AT BED TIME FOR BOTH EYES
     Route: 047

REACTIONS (4)
  - Cataract [Unknown]
  - Skin discolouration [Unknown]
  - Dark circles under eyes [Unknown]
  - Growth of eyelashes [Unknown]
